FAERS Safety Report 21149150 (Version 6)
Quarter: 2023Q2

REPORT INFORMATION
  Report Type: Report from Study
  Country: US (occurrence: US)
  Receive Date: 20220729
  Receipt Date: 20230424
  Transmission Date: 20230722
  Serious: No
  Sender: FDA-Public Use
  Company Number: US-BIOVITRUM-2022US08943

PATIENT
  Age: 53 Year
  Sex: Female

DRUGS (5)
  1. KINERET [Suspect]
     Active Substance: ANAKINRA
     Indication: Familial amyloidosis
     Dosage: FREQUENCY: ONCE DAILY
     Route: 058
     Dates: start: 20220701
  2. KINERET [Suspect]
     Active Substance: ANAKINRA
     Dosage: FREQUENCY: ONCE DAILY
     Route: 058
     Dates: start: 202206
  3. KINERET [Suspect]
     Active Substance: ANAKINRA
     Dosage: FREQUENCY: ONCE DAILY
     Route: 058
     Dates: start: 20220701
  4. KINERET [Suspect]
     Active Substance: ANAKINRA
     Dosage: FREQUENCY: ONCE DAILY
     Route: 058
  5. KINERET [Suspect]
     Active Substance: ANAKINRA
     Dosage: FREQUENCY: ONCE DAILY
     Route: 058
     Dates: start: 20220630

REACTIONS (9)
  - Intentional product misuse [Not Recovered/Not Resolved]
  - Injection site reaction [Recovered/Resolved]
  - Pruritus [Unknown]
  - Urticaria [Unknown]
  - Feeling hot [Unknown]
  - Erythema [Unknown]
  - Skin reaction [Recovering/Resolving]
  - Rash [Unknown]
  - Injection site urticaria [Recovering/Resolving]
